FAERS Safety Report 5090259-2 (Version None)
Quarter: 2006Q3

REPORT INFORMATION
  Report Type: 
  Country: None (occurrence: None)
  Receive Date: 20060828
  Receipt Date: 20060627
  Transmission Date: 20061208
  Serious: No
  Sender: FDA-Public Use
  Company Number: US-GLAXOSMITHKLINE-A0610520A

PATIENT
  Age: 44 Year
  Sex: Female

DRUGS (4)
  1. WELLBUTRIN XL [Suspect]
     Indication: DEPRESSION
     Dosage: 150MG IN THE MORNING
     Route: 048
     Dates: start: 20060301, end: 20060627
  2. WELLBUTRIN SR [Suspect]
     Indication: DEPRESSION
     Dosage: 150MG AS REQUIRED
     Route: 048
     Dates: start: 20060301, end: 20060713
  3. RESTORIL [Concomitant]
     Dosage: 15MG AS REQUIRED
     Route: 048
     Dates: start: 20060614
  4. ATENOLOL [Concomitant]
     Dosage: 10MG PER DAY
     Route: 048

REACTIONS (1)
  - MUSCLE TWITCHING [None]
